FAERS Safety Report 20830048 (Version 7)
Quarter: 2022Q3

REPORT INFORMATION
  Report Type: Spontaneous
  Country: US (occurrence: US)
  Receive Date: 20220514
  Receipt Date: 20220806
  Transmission Date: 20221027
  Serious: No
  Sender: FDA-Public Use
  Company Number: US-UNITED THERAPEUTICS-UNT-2022-009648

PATIENT
  Age: 55 Year
  Sex: Female
  Weight: 73.923 kg

DRUGS (12)
  1. ORENITRAM [Suspect]
     Active Substance: TREPROSTINIL
     Indication: Pulmonary arterial hypertension
     Dosage: UNK
     Route: 048
     Dates: start: 20210212
  2. ORENITRAM [Suspect]
     Active Substance: TREPROSTINIL
     Dosage: 5 MG (1 TABLET OF 5 MG), Q8H
     Route: 048
  3. ORENITRAM [Suspect]
     Active Substance: TREPROSTINIL
     Indication: Pulmonary arterial hypertension
     Dosage: UNK
     Route: 048
  4. ORENITRAM [Suspect]
     Active Substance: TREPROSTINIL
     Dosage: UNK
     Route: 048
  5. OPSUMIT [Suspect]
     Active Substance: MACITENTAN
     Indication: Pulmonary arterial hypertension
     Dosage: 10 MG, QD
     Route: 048
  6. LASIX [Suspect]
     Active Substance: FUROSEMIDE
     Indication: Product used for unknown indication
     Dosage: UNK
     Route: 065
  7. ADEMPAS [Suspect]
     Active Substance: RIOCIGUAT
     Indication: Product used for unknown indication
     Dosage: UNK
     Route: 065
     Dates: start: 20220512
  8. PEPCID AC [Suspect]
     Active Substance: FAMOTIDINE
     Indication: Dyspepsia
     Dosage: UNK UNK, BID
     Route: 065
  9. PEPCID AC [Suspect]
     Active Substance: FAMOTIDINE
     Indication: Gastrooesophageal reflux disease
  10. TUMS [Suspect]
     Active Substance: CALCIUM CARBONATE
     Indication: Dyspepsia
     Route: 065
  11. TUMS [Suspect]
     Active Substance: CALCIUM CARBONATE
     Indication: Gastrooesophageal reflux disease
  12. TYLENOL [Suspect]
     Active Substance: ACETAMINOPHEN
     Indication: Product used for unknown indication
     Dosage: UNK
     Route: 065

REACTIONS (21)
  - Bronchitis viral [Unknown]
  - Oropharyngeal pain [Recovering/Resolving]
  - Product appearance confusion [Unknown]
  - Dyspepsia [Not Recovered/Not Resolved]
  - Headache [Unknown]
  - Gastrooesophageal reflux disease [Not Recovered/Not Resolved]
  - Respiratory tract congestion [Unknown]
  - Hypersensitivity [Unknown]
  - Memory impairment [Unknown]
  - Gastrointestinal motility disorder [Unknown]
  - Constipation [Unknown]
  - Diarrhoea [Unknown]
  - Therapy non-responder [Not Recovered/Not Resolved]
  - Pain in jaw [Unknown]
  - Dyspnoea [Unknown]
  - Flushing [Not Recovered/Not Resolved]
  - Vomiting [Unknown]
  - Feeling hot [Unknown]
  - Throat irritation [Unknown]
  - Abdominal pain upper [Unknown]
  - Nasal congestion [Unknown]

NARRATIVE: CASE EVENT DATE: 20220421
